FAERS Safety Report 10098317 (Version 1)
Quarter: 2014Q2

REPORT INFORMATION
  Report Type: Report from Study
  Country: US (occurrence: US)
  Receive Date: 20140423
  Receipt Date: 20140423
  Transmission Date: 20141212
  Serious: Yes (Other)
  Sender: FDA-Public Use
  Company Number: PHEH2014US007576

PATIENT
  Age: 71 Year
  Sex: Female

DRUGS (1)
  1. GLEEVEC [Suspect]
     Indication: CHRONIC MYELOID LEUKAEMIA
     Dosage: 400 MG, QD
     Route: 048
     Dates: start: 20120326

REACTIONS (5)
  - Loss of consciousness [Unknown]
  - Blood potassium decreased [Unknown]
  - Paraesthesia [Unknown]
  - Hyperhidrosis [Unknown]
  - Syncope [Unknown]
